FAERS Safety Report 15099336 (Version 1)
Quarter: 2018Q3

REPORT INFORMATION
  Report Type: Report from Study
  Country: US (occurrence: US)
  Receive Date: 20180702
  Receipt Date: 20180702
  Transmission Date: 20181010
  Serious: Yes (Disabling, Other)
  Sender: FDA-Public Use
  Company Number: US-SHIRE-US201822631

PATIENT
  Sex: Female

DRUGS (1)
  1. GATTEX [Suspect]
     Active Substance: TEDUGLUTIDE\WATER
     Indication: PRODUCT USED FOR UNKNOWN INDICATION
     Dosage: UNK, 1X/DAY:QD
     Route: 058
     Dates: start: 201604

REACTIONS (12)
  - Frequent bowel movements [Unknown]
  - Herpes zoster [Unknown]
  - Anaemia [Unknown]
  - Asthenia [Unknown]
  - Hypokalaemia [Unknown]
  - Immunodeficiency [Unknown]
  - Infection [Unknown]
  - Loss of personal independence in daily activities [Unknown]
  - Sepsis [Unknown]
  - Vesical fistula [Unknown]
  - Urinary tract infection [Unknown]
  - Unevaluable event [Unknown]
